FAERS Safety Report 18673414 (Version 1)
Quarter: 2020Q4

REPORT INFORMATION
  Report Type: Report from Study
  Country: None (occurrence: CA)
  Receive Date: 20201229
  Receipt Date: 20201229
  Transmission Date: 20210114
  Serious: Yes (Other)
  Sender: FDA-Public Use
  Company Number: CA-ABBVIE-20K-028-3708872-00

PATIENT
  Age: 58 Year
  Sex: Female

DRUGS (2)
  1. RINVOQ [Suspect]
     Active Substance: UPADACITINIB
     Indication: RHEUMATOID ARTHRITIS
     Route: 048
     Dates: start: 20201204, end: 20201220
  2. TRAMADOL. [Suspect]
     Active Substance: TRAMADOL
     Indication: WRIST FRACTURE
     Route: 065
     Dates: start: 202012

REACTIONS (2)
  - Wrist fracture [Unknown]
  - Malaise [Unknown]

NARRATIVE: CASE EVENT DATE: 202012
